FAERS Safety Report 5938368-7 (Version None)
Quarter: 2008Q4

REPORT INFORMATION
  Report Type: 
  Country: None (occurrence: None)
  Receive Date: 20081103
  Receipt Date: 20081029
  Transmission Date: 20090506
  Serious: Yes (Hospitalization)
  Sender: FDA-Public Use
  Company Number: NA-BRISTOL-MYERS SQUIBB COMPANY-14389787

PATIENT

DRUGS (1)
  1. ERBITUX [Suspect]

REACTIONS (2)
  - HYPOGLYCAEMIA [None]
  - SKIN REACTION [None]
